FAERS Safety Report 24753621 (Version 4)
Quarter: 2025Q2

REPORT INFORMATION
  Report Type: Report from Study
  Country: US (occurrence: US)
  Receive Date: 20241219
  Receipt Date: 20250513
  Transmission Date: 20250716
  Serious: Yes (Other)
  Sender: NOVARTIS
  Company Number: US-002147023-NVSC2024US185406

PATIENT
  Sex: Female

DRUGS (1)
  1. KESIMPTA [Suspect]
     Active Substance: OFATUMUMAB
     Indication: Product used for unknown indication
     Route: 065

REACTIONS (9)
  - Multiple sclerosis [Unknown]
  - Pain [Unknown]
  - Condition aggravated [Unknown]
  - Gait disturbance [Unknown]
  - Myalgia [Unknown]
  - Migraine [Unknown]
  - Injection site pain [Unknown]
  - Headache [Unknown]
  - Nausea [Unknown]
